FAERS Safety Report 4514071-5 (Version None)
Quarter: 2004Q4

REPORT INFORMATION
  Report Type: 
  Country: None (occurrence: None)
  Receive Date: 20041130
  Receipt Date: 20041111
  Transmission Date: 20050328
  Serious: Yes (Other)
  Sender: FDA-Public Use
  Company Number: NL-GLAXOSMITHKLINE-B0358253A

PATIENT
  Age: 58 Year
  Sex: Female

DRUGS (6)
  1. ROSIGLITAZONE MALEATE [Suspect]
     Dosage: 4MG PER DAY
     Dates: start: 20040701
  2. SELOKEEN [Suspect]
     Dosage: 50MG PER DAY
     Route: 065
  3. SULFONYLUREA [Concomitant]
  4. AMARYL [Concomitant]
     Dosage: 1.5MG PER DAY
     Route: 065
     Dates: start: 20040701
  5. TILDIEM XR [Concomitant]
     Dosage: 200MG PER DAY
     Route: 065
  6. COZAAR [Concomitant]
     Dosage: 50MG PER DAY
     Route: 065

REACTIONS (4)
  - BLOOD PRESSURE DECREASED [None]
  - FEELING COLD [None]
  - HYPOGLYCAEMIA [None]
  - PARAESTHESIA [None]
